FAERS Safety Report 25355615 (Version 1)
Quarter: 2025Q2

REPORT INFORMATION
  Report Type: Report from Study
  Country: US (occurrence: US)
  Receive Date: 20250525
  Receipt Date: 20250525
  Transmission Date: 20250717
  Serious: Yes (Hospitalization)
  Sender: ABBVIE
  Company Number: US-ABBVIE-6292129

PATIENT
  Sex: Female

DRUGS (1)
  1. SKYRIZI [Suspect]
     Active Substance: RISANKIZUMAB-RZAA
     Indication: Crohn^s disease
     Route: 058
     Dates: start: 20240314

REACTIONS (4)
  - Respiratory syncytial virus infection [Recovering/Resolving]
  - Pneumonia [Recovering/Resolving]
  - Hypotension [Recovering/Resolving]
  - Urinary tract infection [Recovering/Resolving]
